FAERS Safety Report 24790031 (Version 1)
Quarter: 2024Q4

REPORT INFORMATION
  Report Type: Spontaneous
  Country: US (occurrence: US)
  Receive Date: 20241230
  Receipt Date: 20241230
  Transmission Date: 20250115
  Serious: No
  Sender: ROCHE
  Company Number: US-ROCHE-10000163168

PATIENT

DRUGS (3)
  1. XOLAIR PFS [Suspect]
     Active Substance: OMALIZUMAB
     Indication: Asthma
     Dosage: 225 MG EVERY 14 DAYS
     Route: 065
  2. XOLAIR PFS [Suspect]
     Active Substance: OMALIZUMAB
     Dosage: 150 MG/ML  DISPENSE 2 ML
     Route: 065
  3. XOLAIR PFS [Suspect]
     Active Substance: OMALIZUMAB
     Dosage: 75 MG/0.5 ML DISPENSE 1 ML
     Route: 065

REACTIONS (2)
  - Intercepted product storage error [Unknown]
  - No adverse event [Unknown]
